FAERS Safety Report 8234582-9 (Version None)
Quarter: 2012Q1

REPORT INFORMATION
  Report Type: 
  Country: None (occurrence: None)
  Receive Date: 20120326
  Receipt Date: 20120130
  Transmission Date: 20120608
  Serious: Yes (Hospitalization)
  Sender: FDA-Public Use
  Company Number: DE-ROCHE-1047217

PATIENT
  Sex: Female
  Weight: 70 kg

DRUGS (3)
  1. CARBOPLATIN [Suspect]
     Indication: BREAST CANCER
     Dosage: MOST RECENT DATE 05/MAY/2011
     Route: 042
     Dates: start: 20110415, end: 20110505
  2. HERCEPTIN [Suspect]
     Indication: BREAST CANCER
     Dosage: MOST RECENT DATE 05/MAY/2011
     Route: 042
     Dates: start: 20110415, end: 20110505
  3. DOCETAXEL [Suspect]
     Indication: BREAST CANCER
     Dosage: MOST RECENT DATE 05/MAY/2011
     Route: 042
     Dates: start: 20110415, end: 20110505

REACTIONS (1)
  - SEPSIS [None]
